FAERS Safety Report 15426470 (Version 4)
Quarter: 2019Q3

REPORT INFORMATION
  Report Type: Spontaneous
  Country: JP (occurrence: JP)
  Receive Date: 20180925
  Receipt Date: 20190830
  Transmission Date: 20191004
  Serious: Yes (Death, Other)
  Sender: FDA-Public Use
  Company Number: JP-PFIZER INC-2018381058

PATIENT
  Age: 64 Year
  Sex: Female

DRUGS (5)
  1. EVEROLIMUS. [Suspect]
     Active Substance: EVEROLIMUS
     Dosage: UNK UNK, CYCLIC
  2. FULVESTRANT. [Concomitant]
     Active Substance: FULVESTRANT
     Dosage: 500 MG, DAILY
     Route: 030
     Dates: start: 20180115, end: 20180813
  3. IBRANCE [Suspect]
     Active Substance: PALBOCICLIB
     Indication: BREAST CANCER RECURRENT
     Dosage: 125 MG, 1X/DAY
     Route: 048
     Dates: start: 20180319, end: 20180827
  4. EXEMESTANE. [Suspect]
     Active Substance: EXEMESTANE
     Dosage: UNK UNK, CYCLIC
  5. RANMARK [Concomitant]
     Active Substance: DENOSUMAB
     Dosage: 120 MG, DAILY
     Route: 058
     Dates: start: 20170731, end: 20180813

REACTIONS (3)
  - Neoplasm progression [Fatal]
  - Interstitial lung disease [Fatal]
  - Respiratory failure [Fatal]

NARRATIVE: CASE EVENT DATE: 20180913
